FAERS Safety Report 5895245-8 (Version None)
Quarter: 2008Q3

REPORT INFORMATION
  Report Type: 
  Country: None (occurrence: None)
  Receive Date: 20080924
  Receipt Date: 20080917
  Transmission Date: 20090109
  Serious: Yes (Other)
  Sender: FDA-Public Use
  Company Number: B0537453A

PATIENT
  Age: 42 Year
  Sex: Male

DRUGS (1)
  1. AMOXICILLIN [Suspect]
     Indication: TOOTH INFECTION
     Dates: start: 20070717, end: 20070723

REACTIONS (2)
  - FACIAL PAIN [None]
  - HYPOAESTHESIA FACIAL [None]
